FAERS Safety Report 25835708 (Version 1)
Quarter: 2025Q3

REPORT INFORMATION
  Report Type: Spontaneous
  Country: US (occurrence: US)
  Receive Date: 20250923
  Receipt Date: 20250923
  Transmission Date: 20251021
  Serious: No
  Sender: TOLMAR
  Company Number: US-Tolmar-TLM-2025-06535

PATIENT

DRUGS (2)
  1. ELIGARD [Suspect]
     Active Substance: LEUPROLIDE ACETATE
     Indication: Breast cancer
  2. DEVICE [Suspect]
     Active Substance: DEVICE
     Indication: Breast cancer

REACTIONS (2)
  - Intercepted product administration error [Unknown]
  - Off label use [Unknown]
